FAERS Safety Report 9540854 (Version 1)
Quarter: 2013Q3

REPORT INFORMATION
  Report Type: Report from Study
  Country: BR (occurrence: BR)
  Receive Date: 20130920
  Receipt Date: 20130920
  Transmission Date: 20140515
  Serious: Yes (Other)
  Sender: FDA-Public Use
  Company Number: PHHY2013BR105002

PATIENT
  Sex: Female
  Weight: 50 kg

DRUGS (12)
  1. ACLASTA [Suspect]
     Indication: OSTEOPOROSIS
     Dosage: UNK
     Route: 042
  2. RIVOTRIL [Suspect]
     Indication: INSOMNIA
     Dosage: UNK
     Dates: start: 1993
  3. OSTEONUTRI [Concomitant]
  4. SUPRADYN                                /ARG/ [Concomitant]
     Dosage: UNK
     Dates: start: 2012
  5. ACIDO FOLICO [Concomitant]
  6. LIVIAL [Concomitant]
     Dosage: UNK
     Dates: start: 2008
  7. OMEGA 3 [Concomitant]
     Dosage: UNK
     Dates: start: 2008
  8. STABLON [Concomitant]
     Dosage: UNK
     Dates: start: 2011
  9. TOPIRAMATE [Concomitant]
  10. ALPRAZOLAM [Concomitant]
  11. SERTRALINE [Concomitant]
  12. COENZYME [Concomitant]

REACTIONS (5)
  - Periarthritis [Recovering/Resolving]
  - Limb discomfort [Recovering/Resolving]
  - Hypokinesia [Recovering/Resolving]
  - Pain in extremity [Recovering/Resolving]
  - Drug dependence [Recovering/Resolving]
